FAERS Safety Report 6113685-9 (Version None)
Quarter: 2009Q1

REPORT INFORMATION
  Report Type: 
  Country: None (occurrence: None)
  Receive Date: 20090312
  Receipt Date: 20090225
  Transmission Date: 20090719
  Serious: Yes (Other)
  Sender: FDA-Public Use
  Company Number: FR-PFIZER INC-2009180767

PATIENT

DRUGS (1)
  1. CHANTIX [Suspect]
     Dosage: 2 MG/DAY
     Dates: start: 20071117

REACTIONS (6)
  - ACCIDENTAL DRUG INTAKE BY CHILD [None]
  - NAUSEA [None]
  - NERVOUSNESS [None]
  - PALLOR [None]
  - SOMNOLENCE [None]
  - VOMITING [None]
